FAERS Safety Report 9855749 (Version 7)
Quarter: 2014Q2

REPORT INFORMATION
  Report Type: Report from Study
  Country: CA (occurrence: CA)
  Receive Date: 20140130
  Receipt Date: 20140428
  Transmission Date: 20141212
  Serious: Yes (Death, Disabling, Other)
  Sender: FDA-Public Use
  Company Number: PHHY2012CA079363

PATIENT
  Age: 56 Year
  Sex: Female

DRUGS (2)
  1. SANDOSTATIN LAR [Suspect]
     Indication: PANCREATIC NEUROENDOCRINE TUMOUR
     Dosage: 30 MG, EVERY 3 WEEKS
     Route: 030
     Dates: start: 20110815
  2. SANDOSTATIN LAR [Suspect]
     Indication: OFF LABEL USE

REACTIONS (7)
  - Death [Fatal]
  - Mobility decreased [Unknown]
  - Blood pressure systolic decreased [Unknown]
  - Malignant neoplasm progression [Unknown]
  - Pain [Unknown]
  - Weight decreased [Unknown]
  - Malaise [Unknown]
